FAERS Safety Report 9464678 (Version 2)
Quarter: 2013Q4

REPORT INFORMATION
  Report Type: Spontaneous
  Country: FR (occurrence: FR)
  Receive Date: 20130819
  Receipt Date: 20131025
  Transmission Date: 20140711
  Serious: Yes (Congenital Anomaly)
  Sender: FDA-Public Use
  Company Number: FR-ROCHE-1261915

PATIENT
  Sex: 0
  Weight: 2.18 kg

DRUGS (4)
  1. CELLCEPT [Suspect]
     Indication: PROPHYLAXIS AGAINST TRANSPLANT REJECTION
     Route: 048
     Dates: start: 20120312
  2. RAPAMUNE [Concomitant]
  3. CORTANCYL [Concomitant]
  4. ASPEGIC (FRANCE) [Concomitant]

REACTIONS (3)
  - Maternal exposure timing unspecified [Unknown]
  - Heart disease congenital [Recovered/Resolved]
  - Ventricular septal defect [Recovered/Resolved]
